FAERS Safety Report 20009398 (Version 1)
Quarter: 2021Q4

REPORT INFORMATION
  Report Type: Spontaneous
  Country: US (occurrence: US)
  Receive Date: 20211028
  Receipt Date: 20211028
  Transmission Date: 20220303
  Serious: Yes (Other)
  Sender: FDA-Public Use
  Company Number: US-JUBILANT CADISTA PHARMACEUTICALS-2021JUB00336

PATIENT
  Sex: Male
  Weight: 179.14 kg

DRUGS (3)
  1. LOSARTAN POTASSIUM AND HYDROCHLOROTHIAZIDE [Suspect]
     Active Substance: HYDROCHLOROTHIAZIDE\LOSARTAN POTASSIUM
     Indication: Blood pressure abnormal
     Dosage: 1 TABLETS, 1X/DAY
     Route: 048
  2. ALLOPURINOL [Concomitant]
     Active Substance: ALLOPURINOL
     Indication: Gout
  3. CARVEDILOL [Concomitant]
     Active Substance: CARVEDILOL

REACTIONS (6)
  - Blood pressure increased [Not Recovered/Not Resolved]
  - Erythema [Not Recovered/Not Resolved]
  - Ocular hyperaemia [Not Recovered/Not Resolved]
  - Drug ineffective [Not Recovered/Not Resolved]
  - Recalled product administered [Not Recovered/Not Resolved]
  - Product impurity [Not Recovered/Not Resolved]

NARRATIVE: CASE EVENT DATE: 20210101
